FAERS Safety Report 4440748-6 (Version None)
Quarter: 2004Q3

REPORT INFORMATION
  Report Type: 
  Country: None (occurrence: None)
  Receive Date: 20040728
  Receipt Date: 20040318
  Transmission Date: 20050211
  Serious: No
  Sender: FDA-Public Use
  Company Number: USA040361789

PATIENT
  Age: 25 Year
  Sex: Male
  Weight: 78 kg

DRUGS (2)
  1. STRATTERA [Suspect]
     Indication: ATTENTION DEFICIT/HYPERACTIVITY DISORDER
     Dosage: 60 MG IN THE MORNING
     Dates: start: 20040311
  2. ADDERALL 10 [Concomitant]

REACTIONS (4)
  - ABDOMINAL PAIN UPPER [None]
  - EJACULATION DISORDER [None]
  - NAUSEA [None]
  - TESTICULAR PAIN [None]
